FAERS Safety Report 10254596 (Version 1)
Quarter: 2014Q2

REPORT INFORMATION
  Report Type: Spontaneous
  Country: US (occurrence: None)
  Receive Date: 20140620
  Receipt Date: 20140620
  Transmission Date: 20141212
  Serious: Yes (Life-Threatening)
  Sender: FDA-Public Use
  Company Number: None

PATIENT
  Age: 46 Year
  Sex: Female
  Weight: 54.5 kg

DRUGS (1)
  1. DESMOPRESSIN [Suspect]
     Indication: DIABETES INSIPIDUS
     Dosage: 1 MCG AT 4AM, MAY REPEAT SUBCUTANEOUSLY
     Route: 058
     Dates: start: 200511, end: 201008

REACTIONS (2)
  - Electrolyte imbalance [None]
  - Product substitution issue [None]
